FAERS Safety Report 8812477 (Version 1)
Quarter: 2012Q4

REPORT INFORMATION
  Report Type: 
  Country: TH (occurrence: TH)
  Receive Date: 20120927
  Receipt Date: 20120927
  Transmission Date: 20130627
  Serious: Yes (Death, Hospitalization)
  Sender: FDA-Public Use
  Company Number: PHHY2009TH51333

PATIENT
  Age: 42 Year
  Sex: Female

DRUGS (1)
  1. GLIVEC [Suspect]
     Indication: CHRONIC MYELOID LEUKAEMIA
     Dosage: 400 mg per day
     Route: 048
     Dates: start: 20090820, end: 20091025

REACTIONS (3)
  - Hepatic cancer [Fatal]
  - Metastases to liver [Fatal]
  - Fluid retention [Unknown]
